FAERS Safety Report 18383126 (Version 2)
Quarter: 2021Q1

REPORT INFORMATION
  Report Type: Spontaneous
  Country: US (occurrence: US)
  Receive Date: 20201014
  Receipt Date: 20210212
  Transmission Date: 20210419
  Serious: Yes (Other)
  Sender: FDA-Public Use
  Company Number: US-JNJFOC-A-US2020-207974

PATIENT
  Age: 55 Year
  Sex: Female
  Weight: 47.62 kg

DRUGS (9)
  1. UPTRAVI [Suspect]
     Active Substance: SELEXIPAG
     Indication: PULMONARY ARTERIAL HYPERTENSION
     Dosage: 200 MCG, BID
     Route: 048
  2. UPTRAVI [Suspect]
     Active Substance: SELEXIPAG
     Dosage: 400 MCG, BID
     Route: 048
  3. SILDENAFIL CITRATE. [Concomitant]
     Active Substance: SILDENAFIL CITRATE
  4. UPTRAVI [Suspect]
     Active Substance: SELEXIPAG
     Route: 048
  5. UPTRAVI [Suspect]
     Active Substance: SELEXIPAG
     Route: 048
  6. UPTRAVI [Suspect]
     Active Substance: SELEXIPAG
     Route: 048
  7. UPTRAVI [Suspect]
     Active Substance: SELEXIPAG
     Dosage: 600 MCG, BID
     Route: 048
     Dates: start: 20200817
  8. UPTRAVI [Suspect]
     Active Substance: SELEXIPAG
     Dosage: 600MCG IN THE AM AND 800MCG IN THE PM
     Route: 048
  9. AMBRISENTAN [Concomitant]
     Active Substance: AMBRISENTAN

REACTIONS (29)
  - Multiple sclerosis [Unknown]
  - Flushing [Not Recovered/Not Resolved]
  - Migraine [Unknown]
  - Product dose omission issue [Unknown]
  - Nausea [Not Recovered/Not Resolved]
  - Pain in extremity [Not Recovered/Not Resolved]
  - Vomiting [Unknown]
  - Heart rate increased [Unknown]
  - Pain in jaw [Unknown]
  - Arthralgia [Unknown]
  - Arthralgia [Not Recovered/Not Resolved]
  - Gastrooesophageal reflux disease [Not Recovered/Not Resolved]
  - Restless legs syndrome [Not Recovered/Not Resolved]
  - Oxygen saturation decreased [Unknown]
  - Taste disorder [Unknown]
  - Anxiety [Unknown]
  - Dry mouth [Unknown]
  - Pain [Unknown]
  - Chest discomfort [Not Recovered/Not Resolved]
  - Dyspnoea [Unknown]
  - Decreased appetite [Unknown]
  - Weight decreased [Unknown]
  - Headache [Not Recovered/Not Resolved]
  - Fatigue [Not Recovered/Not Resolved]
  - Diarrhoea [Unknown]
  - Abdominal distension [Unknown]
  - Exercise tolerance decreased [Unknown]
  - Hypotension [Unknown]
  - Chest discomfort [Unknown]
